FAERS Safety Report 22962478 (Version 2)
Quarter: 2023Q4

REPORT INFORMATION
  Report Type: Spontaneous
  Country: US (occurrence: US)
  Receive Date: 20230920
  Receipt Date: 20231020
  Transmission Date: 20240109
  Serious: Yes (Other)
  Sender: FDA-Public Use
  Company Number: US-Stemline Therapeutics, Inc.-2023ST002802

PATIENT
  Age: 61 Year
  Sex: Female

DRUGS (1)
  1. ORSERDU [Suspect]
     Active Substance: ELACESTRANT
     Indication: Product used for unknown indication
     Dosage: 345 MG ONCE DAILY
     Route: 048
     Dates: start: 20230707, end: 20231011

REACTIONS (4)
  - Neoplasm [Not Recovered/Not Resolved]
  - Disease progression [Unknown]
  - Wisdom teeth removal [Recovered/Resolved]
  - Cough [Recovering/Resolving]
